FAERS Safety Report 6453418-X (Version None)
Quarter: 2009Q4

REPORT INFORMATION
  Report Type: 
  Country: None (occurrence: None)
  Receive Date: 20091124
  Receipt Date: 20091113
  Transmission Date: 20100525
  Serious: Yes (Other)
  Sender: FDA-Public Use
  Company Number: FI-ROCHE-669084

PATIENT
  Sex: Male
  Weight: 30 kg

DRUGS (2)
  1. TAMIFLU [Suspect]
     Dosage: FREQUENCY: 6 ML X 2
     Route: 048
     Dates: start: 20091113, end: 20091113
  2. PANADOL [Concomitant]
     Dates: start: 20091113

REACTIONS (6)
  - ANXIETY [None]
  - CONFUSIONAL STATE [None]
  - HALLUCINATION, VISUAL [None]
  - HEADACHE [None]
  - NAUSEA [None]
  - VOMITING [None]
